FAERS Safety Report 25727943 (Version 1)
Quarter: 2025Q3

REPORT INFORMATION
  Report Type: Spontaneous
  Country: US (occurrence: None)
  Receive Date: 20250826
  Receipt Date: 20250826
  Transmission Date: 20251021
  Serious: Yes (Hospitalization)
  Sender: FDA-CTU
  Company Number: None

PATIENT
  Sex: Female

DRUGS (9)
  1. LENALIDOMIDE [Suspect]
     Active Substance: LENALIDOMIDE
     Indication: Plasma cell myeloma
     Route: 048
  2. CALCIUM PLUS [Concomitant]
  3. ELIQUIS [Concomitant]
     Active Substance: APIXABAN
  4. FARXIGA [Concomitant]
     Active Substance: DAPAGLIFLOZIN PROPANEDIOL
  5. GABAPENTIN [Concomitant]
     Active Substance: GABAPENTIN
  6. LOVASTATIN [Concomitant]
     Active Substance: LOVASTATIN
  7. METOPROOL SUC [Concomitant]
  8. NIGHTTIME CGH [Concomitant]
  9. TYLENOL [Concomitant]
     Active Substance: ACETAMINOPHEN

REACTIONS (2)
  - Gallbladder disorder [None]
  - Therapy interrupted [None]
